FAERS Safety Report 6282693-X (Version None)
Quarter: 2009Q3

REPORT INFORMATION
  Report Type: 
  Country: None (occurrence: None)
  Receive Date: 20090724
  Receipt Date: 20090715
  Transmission Date: 20100115
  Serious: Yes (Hospitalization)
  Sender: FDA-Public Use
  Company Number: US-WATSON-2009-05510

PATIENT
  Age: 54 Year
  Sex: Female

DRUGS (4)
  1. OXYCODONE HYDROCHLORIDE/ACETAMINOPHEN 10/325 MG (WATSON LABORATORIES) [Suspect]
     Indication: NEURODEGENERATIVE DISORDER
     Dosage: 1 TAB, Q4H
     Route: 048
     Dates: start: 20090601
  2. OXYCODONE HYDROCHLORIDE/ACETAMINOPHEN 10/325 MG (WATSON LABORATORIES) [Suspect]
     Indication: SURGERY
  3. OXYCODONE HYDROCHLORIDE/ACETAMINOPHEN 5/500 (WATSON LABORATORIES) [Suspect]
     Indication: PAIN
     Dosage: 1 CAPSULE, Q4H
     Route: 048
     Dates: start: 20040101, end: 20090601
  4. MORPHINE SULFATE [Suspect]
     Indication: PAIN
     Dosage: 30 MG, Q4H
     Route: 048
     Dates: start: 19940101, end: 20060101

REACTIONS (3)
  - DRUG INEFFECTIVE [None]
  - FALSE POSITIVE LABORATORY RESULT [None]
  - ISCHAEMIA [None]
